FAERS Safety Report 11135745 (Version 1)
Quarter: 2015Q2

REPORT INFORMATION
  Report Type: Spontaneous
  Country: PR (occurrence: PR)
  Receive Date: 20150526
  Receipt Date: 20150526
  Transmission Date: 20150821
  Serious: No
  Sender: FDA-Public Use
  Company Number: PR-MALLINCKRODT-T201502065

PATIENT
  Sex: Female

DRUGS (1)
  1. H.P. ACTHAR [Suspect]
     Active Substance: CORTICOTROPIN
     Indication: PROTEINURIA
     Dosage: 80 UNITS, TWICE WKLY
     Route: 058
     Dates: start: 201502

REACTIONS (3)
  - Injection site pruritus [Unknown]
  - Hypersensitivity [Unknown]
  - Injection site rash [Unknown]
